FAERS Safety Report 6372108-5 (Version None)
Quarter: 2009Q3

REPORT INFORMATION
  Report Type: 
  Country: None (occurrence: None)
  Receive Date: 20090917
  Receipt Date: 20090908
  Transmission Date: 20100115
  Serious: Yes (Hospitalization)
  Sender: FDA-Public Use
  Company Number: GXKR2009FR10023

PATIENT
  Age: 24 Year
  Sex: Male

DRUGS (3)
  1. IBUROFEN      (IBUPROFEN) UNKNOWN 200MG [Suspect]
     Dosage: 200 MG, BID, ORAL
     Route: 048
     Dates: start: 20090707, end: 20090714
  2. AMOXICILLIN SODIUM W/CLAVULANTE POTASSIUM [Concomitant]
  3. SOLUPRED         (PREDNISOLONE SODIUM SULFOBENZOATE) [Concomitant]

REACTIONS (4)
  - LYMPHADENOPATHY [None]
  - MOUTH ULCERATION [None]
  - PYREXIA [None]
  - WEIGHT DECREASED [None]
